FAERS Safety Report 6371653-6 (Version None)
Quarter: 2009Q3

REPORT INFORMATION
  Report Type: 
  Country: None (occurrence: None)
  Receive Date: 20090923
  Receipt Date: 20080925
  Transmission Date: 20100115
  Serious: Yes (Other)
  Sender: FDA-Public Use
  Company Number: US-ASTRAZENECA-2008UW11511

PATIENT
  Age: 465 Month
  Sex: Male
  Weight: 142.9 kg

DRUGS (2)
  1. SEROQUEL [Suspect]
     Indication: DEPRESSION
     Dosage: 100-300 MG
     Route: 048
     Dates: start: 20020501, end: 20060701
  2. SEROQUEL [Suspect]
     Indication: SLEEP APNOEA SYNDROME
     Dosage: 100-300 MG
     Route: 048
     Dates: start: 20020501, end: 20060701

REACTIONS (3)
  - BLOOD CHOLESTEROL INCREASED [None]
  - DIABETES MELLITUS [None]
  - DIABETIC KETOACIDOSIS [None]
